FAERS Safety Report 4940507-1 (Version None)
Quarter: 2006Q1

REPORT INFORMATION
  Report Type: 
  Country: None (occurrence: None)
  Receive Date: 20060112
  Receipt Date: 20051025
  Transmission Date: 20060701
  Serious: No
  Sender: FDA-Public Use
  Company Number: 2005US001546

PATIENT

DRUGS (1)
  1. MYCAMINE [Suspect]
     Indication: ANTIFUNGAL PROPHYLAXIS

REACTIONS (1)
  - CHROMATURIA [None]
